FAERS Safety Report 9061672 (Version 2)
Quarter: 2013Q1

REPORT INFORMATION
  Report Type: Spontaneous
  Country: US (occurrence: None)
  Receive Date: 20120907
  Receipt Date: 20121114
  Transmission Date: 20140127
  Serious: Yes (Other)
  Sender: FDA-Public Use
  Company Number: US-CLINIGEN HEALTHCARE LIMITED-002995

PATIENT
  Age: 87 Year
  Sex: Male

DRUGS (4)
  1. FOSCAVIR [Suspect]
     Indication: HERPES ZOSTER
     Dosage: INTRA-VITREAL
     Dates: start: 20110118, end: 20110207
  2. VALACICLOVIR [Suspect]
     Indication: RENAL IMPAIRMENT
  3. PREDNISONE [Concomitant]
  4. CORTICOSTEROIDS [Concomitant]

REACTIONS (2)
  - Off label use [None]
  - Carotid arteriosclerosis [None]
